FAERS Safety Report 10200154 (Version 1)
Quarter: 2014Q2

REPORT INFORMATION
  Report Type: Spontaneous
  Country: IT (occurrence: IT)
  Receive Date: 20140527
  Receipt Date: 20140527
  Transmission Date: 20141212
  Serious: Yes (Other)
  Sender: FDA-Public Use
  Company Number: IT-MYLANLABS-2014S1011566

PATIENT
  Age: 79 Year
  Sex: Male

DRUGS (10)
  1. SERTRALINE [Suspect]
     Indication: DEPRESSION
     Dosage: 1.5 DF DAILY
     Route: 048
     Dates: start: 20140201, end: 20140508
  2. MINIAS [Concomitant]
     Indication: PRODUCT USED FOR UNKNOWN INDICATION
     Dosage: 3 GTT
     Route: 048
  3. NOOTROPIL [Concomitant]
     Indication: PRODUCT USED FOR UNKNOWN INDICATION
  4. COTAREG [Concomitant]
     Indication: PRODUCT USED FOR UNKNOWN INDICATION
  5. LASIX [Concomitant]
     Indication: PRODUCT USED FOR UNKNOWN INDICATION
  6. NORVASC [Concomitant]
     Indication: PRODUCT USED FOR UNKNOWN INDICATION
  7. EN [Concomitant]
     Indication: PRODUCT USED FOR UNKNOWN INDICATION
     Dosage: 1 MG/ML
  8. STILNOX [Concomitant]
     Indication: PRODUCT USED FOR UNKNOWN INDICATION
  9. SELEPARINA [Concomitant]
     Indication: PRODUCT USED FOR UNKNOWN INDICATION
  10. ALLOPURINOL [Concomitant]
     Indication: PRODUCT USED FOR UNKNOWN INDICATION

REACTIONS (2)
  - Anxiety [Recovering/Resolving]
  - Psychomotor hyperactivity [Recovering/Resolving]
